FAERS Safety Report 15280745 (Version 1)
Quarter: 2018Q3

REPORT INFORMATION
  Report Type: Spontaneous
  Country: IE (occurrence: IE)
  Receive Date: 20180815
  Receipt Date: 20180815
  Transmission Date: 20181010
  Serious: Yes (Other)
  Sender: FDA-Public Use
  Company Number: PHHY2018IE071042

PATIENT
  Age: 63 Year
  Sex: Male
  Weight: 97.7 kg

DRUGS (11)
  1. LANSOPRAZOLE. [Concomitant]
     Active Substance: LANSOPRAZOLE
     Indication: PRODUCT USED FOR UNKNOWN INDICATION
     Dosage: 15 MG, UNK
     Route: 065
  2. CALCI CHEW D3 [Concomitant]
     Active Substance: CALCIUM CARBONATE\CHOLECALCIFEROL
     Indication: PRODUCT USED FOR UNKNOWN INDICATION
     Dosage: 1 DF, UNK
     Route: 065
  3. MIRAPEXIN [Concomitant]
     Active Substance: PRAMIPEXOLE
     Indication: PRODUCT USED FOR UNKNOWN INDICATION
     Route: 065
  4. FOSAMAX [Concomitant]
     Active Substance: ALENDRONATE SODIUM
     Indication: PRODUCT USED FOR UNKNOWN INDICATION
     Dosage: 70 MG, QW (ONCE WEEKLY)
     Route: 065
  5. PREDNISOLONE. [Concomitant]
     Active Substance: PREDNISOLONE
     Indication: PRODUCT USED FOR UNKNOWN INDICATION
     Dosage: 5 MG, UNK
     Route: 065
  6. ATORVASTATIN [Concomitant]
     Active Substance: ATORVASTATIN
     Indication: BLOOD CHOLESTEROL
     Route: 065
  7. FLEBOGAMMA DIF [Suspect]
     Active Substance: HUMAN IMMUNOGLOBULIN G
     Indication: DYSTONIA
     Dosage: 100MG/ML (BOTTLE 1 AND BOTTLE 2)
     Route: 042
  8. FLEBOGAMMA DIF [Suspect]
     Active Substance: HUMAN IMMUNOGLOBULIN G
     Indication: STIFF PERSON SYNDROME
  9. METFORMIN [Concomitant]
     Active Substance: METFORMIN HYDROCHLORIDE
     Indication: DIABETES MELLITUS
     Dosage: 1000 MG, UNK
     Route: 065
  10. NOVORAPID [Concomitant]
     Active Substance: INSULIN ASPART
     Indication: BLOOD INSULIN
     Route: 065
  11. GABAPENTIN. [Suspect]
     Active Substance: GABAPENTIN
     Indication: ANALGESIC THERAPY
     Dosage: 400 MG, UNK
     Route: 065

REACTIONS (4)
  - Chills [Recovered/Resolved]
  - Pruritus [Recovered/Resolved]
  - Asthenia [Recovered/Resolved]
  - Headache [Recovered/Resolved]

NARRATIVE: CASE EVENT DATE: 20180523
